FAERS Safety Report 4742500-0 (Version None)
Quarter: 2005Q3

REPORT INFORMATION
  Report Type: 
  Country: None (occurrence: None)
  Receive Date: 20050808
  Receipt Date: 20050726
  Transmission Date: 20060218
  Serious: Yes (Other)
  Sender: FDA-Public Use
  Company Number: USA0507102845

PATIENT
  Age: 92 Year
  Sex: Female

DRUGS (5)
  1. CYMBALTA [Suspect]
     Dosage: 20 MG
     Dates: start: 20050428, end: 20050707
  2. ZANTAC [Concomitant]
  3. CLONIDINE [Concomitant]
  4. ACCUPRIL [Concomitant]
  5. LASIX [Concomitant]

REACTIONS (4)
  - BLOOD CREATININE INCREASED [None]
  - CARDIAC FAILURE CONGESTIVE [None]
  - MALAISE [None]
  - NAUSEA [None]
